FAERS Safety Report 13757806 (Version 5)
Quarter: 2018Q2

REPORT INFORMATION
  Report Type: Report from Study
  Country: JP (occurrence: JP)
  Receive Date: 20170717
  Receipt Date: 20180510
  Transmission Date: 20180711
  Serious: Yes (Death, Life-Threatening, Other)
  Sender: FDA-Public Use
  Company Number: JP-B.I. PHARMACEUTICALS,INC./RIDGEFIELD-2017-NB-004016

PATIENT
  Age: 68 Year
  Sex: Male
  Weight: 71.4 kg

DRUGS (4)
  1. ZOPICLONE [Concomitant]
     Active Substance: ZOPICLONE
     Indication: PRODUCT USED FOR UNKNOWN INDICATION
     Route: 048
  2. BISOPROLOL FUMARATE. [Concomitant]
     Active Substance: BISOPROLOL FUMARATE
     Indication: PRODUCT USED FOR UNKNOWN INDICATION
     Route: 048
  3. ATORVASTATIN [Concomitant]
     Active Substance: ATORVASTATIN
     Indication: PRODUCT USED FOR UNKNOWN INDICATION
     Route: 048
  4. PRAZAXA [Suspect]
     Active Substance: DABIGATRAN ETEXILATE MESYLATE
     Indication: ATRIAL FIBRILLATION
     Route: 048
     Dates: start: 20170312, end: 20170711

REACTIONS (7)
  - Pneumonia [Fatal]
  - Disseminated intravascular coagulation [Unknown]
  - Respiratory failure [Unknown]
  - Cerebral infarction [Unknown]
  - Ischaemic stroke [Not Recovered/Not Resolved]
  - Brain herniation [Unknown]
  - Septic shock [Unknown]

NARRATIVE: CASE EVENT DATE: 201704
